FAERS Safety Report 6405741-2 (Version None)
Quarter: 2009Q4

REPORT INFORMATION
  Report Type: 
  Country: None (occurrence: None)
  Receive Date: 20091016
  Receipt Date: 20091016
  Transmission Date: 20100525
  Serious: Yes (Other)
  Sender: FDA-Public Use
  Company Number: None

PATIENT
  Age: 67 Year
  Sex: Male
  Weight: 92.9874 kg

DRUGS (1)
  1. BACTRIM [Suspect]
     Indication: INFECTION
     Dosage: 1 TABLET TWICE A DAY
     Dates: start: 20090929

REACTIONS (3)
  - DRUG INEFFECTIVE [None]
  - HAEMATOCHEZIA [None]
  - MUCOUS STOOLS [None]
